FAERS Safety Report 5723533-4 (Version None)
Quarter: 2008Q2

REPORT INFORMATION
  Report Type: 
  Country: None (occurrence: None)
  Receive Date: 20080430
  Receipt Date: 20080424
  Transmission Date: 20081010
  Serious: Yes (Other)
  Sender: FDA-Public Use
  Company Number: A0714988A

PATIENT
  Age: 55 Year
  Sex: Female

DRUGS (2)
  1. VENTOLIN [Suspect]
     Indication: ASTHMA
     Dosage: 2PUFF AS REQUIRED
     Route: 055
     Dates: start: 20080205, end: 20080207
  2. DIAZEPAM [Concomitant]

REACTIONS (16)
  - CHAPPED LIPS [None]
  - COUGH [None]
  - DRUG INEFFECTIVE [None]
  - DRY MOUTH [None]
  - DYSGEUSIA [None]
  - DYSPNOEA [None]
  - EXERCISE LACK OF [None]
  - FEAR [None]
  - FEELING ABNORMAL [None]
  - LIP SWELLING [None]
  - LOSS OF CONSCIOUSNESS [None]
  - MALAISE [None]
  - OEDEMA MOUTH [None]
  - ORAL DISCOMFORT [None]
  - STOMATITIS [None]
  - SWOLLEN TONGUE [None]
